FAERS Safety Report 18511457 (Version 1)
Quarter: 2020Q4

REPORT INFORMATION
  Report Type: Spontaneous
  Country: US (occurrence: US)
  Receive Date: 20201117
  Receipt Date: 20201117
  Transmission Date: 20210114
  Serious: Yes (Life-Threatening, Hospitalization)
  Sender: FDA-Public Use
  Company Number: US-PFIZER INC-950613-SS945

PATIENT
  Age: 11 Year
  Sex: Female

DRUGS (13)
  1. REGLAN [Concomitant]
     Active Substance: METOCLOPRAMIDE HYDROCHLORIDE
     Dosage: UNK
     Dates: end: 199503
  2. METRONIDAZOLE. [Suspect]
     Active Substance: METRONIDAZOLE
     Indication: GASTROINTESTINAL INFECTION
  3. BACTRIM [Concomitant]
     Active Substance: SULFAMETHOXAZOLE\TRIMETHOPRIM
     Dosage: UNK
     Dates: end: 199503
  4. THIOGUANINE [Concomitant]
     Active Substance: THIOGUANINE
     Dosage: UNK
     Dates: start: 19950202, end: 19950205
  5. METRONIDAZOLE. [Suspect]
     Active Substance: METRONIDAZOLE
     Indication: RECTAL ABSCESS
  6. ARA-C [Concomitant]
     Active Substance: CYTARABINE
     Dosage: UNK
     Dates: start: 19950202, end: 19950205
  7. NYSTATIN. [Concomitant]
     Active Substance: NYSTATIN
     Dosage: UNK
     Dates: end: 199503
  8. DAUNOMYCIN [DAUNORUBICIN] [Concomitant]
     Active Substance: DAUNORUBICIN
     Dosage: 320 MG/M2
     Dates: start: 19950202, end: 19950205
  9. ETOPOSIDE. [Concomitant]
     Active Substance: ETOPOSIDE
     Dosage: UNK
     Dates: start: 19950202, end: 19950205
  10. CEFTEZOLE [Concomitant]
     Active Substance: CEFTEZOLE SODIUM
     Dosage: UNK
     Dates: end: 199503
  11. DEXAMETHASONE. [Concomitant]
     Active Substance: DEXAMETHASONE
     Dosage: UNK
     Dates: start: 19950202, end: 19950205
  12. METRONIDAZOLE. [Suspect]
     Active Substance: METRONIDAZOLE
     Indication: ANAL ABSCESS
     Dosage: 7.5 MG/KG, 4X/DAY (Q6H (EVERY 6 HOUR))
     Route: 042
     Dates: start: 19950208, end: 19950303
  13. GRANULOCYTE COLONY STIMULATING FACTOR [Concomitant]
     Active Substance: GRANULOCYTE COLONY-STIMULATING FACTOR NOS
     Dosage: UNK

REACTIONS (7)
  - Electrocardiogram QRS complex prolonged [Recovered/Resolved]
  - Torsade de pointes [Recovered/Resolved]
  - Cardiac arrest [Recovered/Resolved]
  - Cardio-respiratory arrest [Recovered/Resolved]
  - Bundle branch block [Recovered/Resolved]
  - Ventricular fibrillation [Recovered/Resolved]
  - Ventricular extrasystoles [Recovered/Resolved]

NARRATIVE: CASE EVENT DATE: 19950302
